FAERS Safety Report 23285194 (Version 1)
Quarter: 2023Q4

REPORT INFORMATION
  Report Type: Spontaneous
  Country: CZ (occurrence: None)
  Receive Date: 20231211
  Receipt Date: 20231211
  Transmission Date: 20240109
  Serious: Yes (Other)
  Sender: FDA-Public Use
  Company Number: 2023A276748

PATIENT
  Age: 41 Year
  Sex: Female
  Weight: 68 kg

DRUGS (10)
  1. TEZSPIRE [Suspect]
     Active Substance: TEZEPELUMAB-EKKO
     Indication: Asthma
     Dosage: 1 INJECTION EVERY 4 WEEKS
     Route: 058
     Dates: start: 20231023
  2. SPIRIVA RESPIMAT [Concomitant]
     Active Substance: TIOTROPIUM BROMIDE
     Indication: Asthma
     Dosage: 2-0-0
     Route: 055
  3. QUETIAPINE FUMARATE [Concomitant]
     Active Substance: QUETIAPINE FUMARATE
     Dosage: 0-0-1, LONG-TERM THERAPY
     Route: 048
  4. EUPHYLLIN CR N [Concomitant]
     Indication: Asthma
     Dosage: 1-0-1
     Route: 048
  5. MONTELUKAST SODIUM [Concomitant]
     Active Substance: MONTELUKAST SODIUM
     Indication: Asthma
     Dosage: 0-0-1
     Route: 048
  6. SYMBICORT [Concomitant]
     Active Substance: BUDESONIDE\FORMOTEROL FUMARATE DIHYDRATE
     Indication: Asthma
     Dosage: 2-2-2
     Route: 055
  7. MIRTAZAPINE [Concomitant]
     Active Substance: MIRTAZAPINE
     Dosage: 0-0-0-1
     Route: 048
  8. ESCITALOPRAM OXALATE [Concomitant]
     Active Substance: ESCITALOPRAM OXALATE
     Dosage: 1-0-0, LONG-TERM THERAPY
     Route: 048
  9. DESLORATADINE [Concomitant]
     Active Substance: DESLORATADINE
     Dosage: 1-0-0, LONG-TERM THERAPY
     Route: 048
  10. VALPROAT CHRONO SANDOZ [Concomitant]
     Dosage: 1-0-1
     Route: 048

REACTIONS (2)
  - Cough [Recovered/Resolved]
  - Post-tussive vomiting [Recovered/Resolved]

NARRATIVE: CASE EVENT DATE: 20231025
